FAERS Safety Report 26094973 (Version 1)
Quarter: 2025Q4

REPORT INFORMATION
  Report Type: Report from Study
  Country: ZA (occurrence: ZA)
  Receive Date: 20251126
  Receipt Date: 20251126
  Transmission Date: 20260118
  Serious: Yes (Other)
  Sender: ROCHE
  Company Number: ZA-ROCHE-10000149331

PATIENT
  Sex: Female

DRUGS (2)
  1. OCREVUS [Suspect]
     Active Substance: OCRELIZUMAB
     Indication: Multiple sclerosis
     Dosage: THEREAFTER 600MG EVERY 6 MONTHS
     Route: 042
     Dates: start: 20231023
  2. OCREVUS [Suspect]
     Active Substance: OCRELIZUMAB
     Dosage: THEREAFTER 600MG EVERY 6 MONTHS
     Route: 042

REACTIONS (5)
  - Lung neoplasm [Unknown]
  - Multiple sclerosis [Unknown]
  - Gliosis [Unknown]
  - Magnetic resonance imaging head abnormal [Unknown]
  - Multiple sclerosis relapse [Unknown]
